FAERS Safety Report 25349284 (Version 1)
Quarter: 2025Q2

REPORT INFORMATION
  Report Type: Spontaneous
  Country: US (occurrence: US)
  Receive Date: 20250522
  Receipt Date: 20250522
  Transmission Date: 20250717
  Serious: No
  Sender: SANOFI AVENTIS
  Company Number: US-SA-2025SA145325

PATIENT
  Sex: Male

DRUGS (6)
  1. DUPIXENT [Suspect]
     Active Substance: DUPILUMAB
     Indication: Squamous cell carcinoma of skin
     Dosage: 300 MG/QOW
     Route: 058
  2. FEXOFENADINE [FEXOFENADINE HYDROCHLORIDE] [Concomitant]
  3. LISINOPRIL [Concomitant]
     Active Substance: LISINOPRIL
  4. PRAVASTATIN [Concomitant]
     Active Substance: PRAVASTATIN
  5. XTANDI [Concomitant]
     Active Substance: ENZALUTAMIDE
  6. TAMSULOSIN [Concomitant]
     Active Substance: TAMSULOSIN

REACTIONS (3)
  - Gastritis [Unknown]
  - Abdominal pain upper [Unknown]
  - Product use in unapproved indication [Unknown]
